FAERS Safety Report 10193000 (Version 4)
Quarter: 2015Q3

REPORT INFORMATION
  Report Type: Spontaneous
  Country: KR (occurrence: KR)
  Receive Date: 20140524
  Receipt Date: 20150728
  Transmission Date: 20151125
  Serious: Yes (Hospitalization)
  Sender: FDA-Public Use
  Company Number: PHHY2014KR062140

PATIENT
  Age: 34 Year
  Sex: Female

DRUGS (1)
  1. CARBAMAZEPINE. [Suspect]
     Active Substance: CARBAMAZEPINE
     Indication: GENERALISED TONIC-CLONIC SEIZURE
     Dosage: 600 MG, PER DAY, FOR THREE DAYS
     Route: 065

REACTIONS (17)
  - Psychotic disorder [Unknown]
  - Anger [Unknown]
  - Intermittent explosive disorder [Unknown]
  - Speech disorder [Unknown]
  - Visual field defect [Unknown]
  - Maternal exposure during pregnancy [Unknown]
  - Aggression [Unknown]
  - Muscle twitching [Unknown]
  - Obsessive-compulsive personality disorder [Unknown]
  - Panic attack [Unknown]
  - Agitation [Unknown]
  - Choking sensation [Unknown]
  - Abnormal behaviour [Unknown]
  - Anxiety [Unknown]
  - Feeling abnormal [Unknown]
  - Metamorphopsia [Unknown]
  - Hallucination, visual [Unknown]
